FAERS Safety Report 9533562 (Version 2)
Quarter: 2013Q3

REPORT INFORMATION
  Report Type: Spontaneous
  Country: US (occurrence: US)
  Receive Date: 20130918
  Receipt Date: 20130918
  Transmission Date: 20140515
  Serious: No
  Sender: FDA-Public Use
  Company Number: US-PURDUE-USA-2011-0074482

PATIENT
  Age: 49 Year
  Sex: Female
  Weight: 61.22 kg

DRUGS (1)
  1. BUTRANS [Suspect]
     Indication: NECK PAIN
     Dosage: 10 MCG, Q1H
     Route: 062
     Dates: start: 20110321

REACTIONS (2)
  - Application site burn [Recovered/Resolved]
  - Application site rash [Recovered/Resolved]
